FAERS Safety Report 16988548 (Version 1)
Quarter: 2019Q4

REPORT INFORMATION
  Report Type: Spontaneous
  Country: US (occurrence: US)
  Receive Date: 20191104
  Receipt Date: 20191104
  Transmission Date: 20200122
  Serious: Yes (Death, Hospitalization)
  Sender: FDA-Public Use
  Company Number: US-HORIZON-PRE-0488-2019

PATIENT
  Age: 64 Year
  Sex: Male

DRUGS (1)
  1. PREDNISONE. [Suspect]
     Active Substance: PREDNISONE
     Indication: END STAGE RENAL DISEASE
     Dosage: 15MG/DAY

REACTIONS (2)
  - Pulmonary alveolar haemorrhage [Fatal]
  - Strongyloidiasis [Fatal]
